FAERS Safety Report 24994353 (Version 2)
Quarter: 2025Q1

REPORT INFORMATION
  Report Type: Report from Study
  Country: ES (occurrence: ES)
  Receive Date: 20250221
  Receipt Date: 20250306
  Transmission Date: 20250408
  Serious: Yes (Hospitalization, Other)
  Sender: BRISTOL-MYERS SQUIBB COMPANY
  Company Number: None

PATIENT
  Age: 59 Year
  Sex: Female
  Weight: 52.3 kg

DRUGS (21)
  1. LENALIDOMIDE [Suspect]
     Active Substance: LENALIDOMIDE
     Indication: Diffuse large B-cell lymphoma
     Route: 048
     Dates: start: 20220706, end: 20221013
  2. LENALIDOMIDE [Suspect]
     Active Substance: LENALIDOMIDE
     Route: 048
     Dates: start: 20221010
  3. LENALIDOMIDE [Suspect]
     Active Substance: LENALIDOMIDE
     Dosage: 20 MG
     Route: 048
     Dates: start: 20221031
  4. VINCRISTINE [Suspect]
     Active Substance: VINCRISTINE
     Indication: Diffuse large B-cell lymphoma
     Dosage: UNK, EVERY 21 DAYS
     Route: 042
     Dates: start: 20220706
  5. VINCRISTINE [Suspect]
     Active Substance: VINCRISTINE
     Dosage: UNK, EVERY 21 DAYS (LAST DOSE PRIOR TO THE ONSET OF SAE)
     Route: 042
     Dates: start: 20221010
  6. TAFASITAMAB [Suspect]
     Active Substance: TAFASITAMAB
     Indication: Diffuse large B-cell lymphoma
     Dosage: 12 MG/KG, EVERY 21 DAYS (PLACEBO)
     Route: 042
     Dates: start: 20220706
  7. TAFASITAMAB [Suspect]
     Active Substance: TAFASITAMAB
     Dosage: 12 MG/KG, EVERY 21 DAYS (LAST DOSE PRIOR TO THE ONSET OF SAE) (PLACEBO)
     Route: 042
     Dates: start: 20221010
  8. RITUXIMAB [Suspect]
     Active Substance: RITUXIMAB
     Indication: Diffuse large B-cell lymphoma
     Dosage: UNK, EVERY 21 DAYS
     Route: 042
     Dates: start: 20220706
  9. RITUXIMAB [Suspect]
     Active Substance: RITUXIMAB
     Dosage: UNK, EVERY 21 DAYS (LAST DOSE PRIOR TO THE ONSET OF SAE)
     Route: 042
     Dates: start: 20221010
  10. PREDNISOLONE [Suspect]
     Active Substance: PREDNISOLONE
     Indication: Diffuse large B-cell lymphoma
     Dosage: UNK, EVERY 21 DAYS
     Dates: start: 20220706
  11. PREDNISOLONE [Suspect]
     Active Substance: PREDNISOLONE
     Dosage: UNK, EVERY 21 DAYS (LAST DOSE PRIOR TO THE ONSET OF SAE)
     Dates: start: 20221010
  12. DOXORUBICIN [Suspect]
     Active Substance: DOXORUBICIN
     Indication: Diffuse large B-cell lymphoma
     Dosage: UNK, EVERY 21 DAYS
     Route: 042
     Dates: start: 20220706
  13. DOXORUBICIN [Suspect]
     Active Substance: DOXORUBICIN
     Dosage: UNK, EVERY 21 DAYS (LAST DOSE PRIOR TO THE ONSET OF SAE)
     Route: 042
     Dates: start: 20221010
  14. CYCLOPHOSPHAMIDE [Suspect]
     Active Substance: CYCLOPHOSPHAMIDE
     Indication: Diffuse large B-cell lymphoma
     Dosage: UNK, EVERY 21 DAYS
     Route: 042
     Dates: start: 20220706
  15. CYCLOPHOSPHAMIDE [Suspect]
     Active Substance: CYCLOPHOSPHAMIDE
     Dosage: UNK, EVERY 21 DAYS (LAST DOSE PRIOR TO THE ONSET OF SAE)
     Route: 042
     Dates: start: 20221010
  16. ALLOPURINOL [Concomitant]
     Active Substance: ALLOPURINOL
     Indication: Product used for unknown indication
     Dates: start: 20220629
  17. ENOXAPARIN SODIUM [Concomitant]
     Active Substance: ENOXAPARIN SODIUM
     Indication: Product used for unknown indication
     Dates: start: 20220706
  18. FENTANYL [Concomitant]
     Active Substance: FENTANYL
     Indication: Product used for unknown indication
     Dates: start: 20220629
  19. FERROUS SULFATE [Concomitant]
     Active Substance: FERROUS SULFATE
     Indication: Product used for unknown indication
     Dates: start: 20220602
  20. OMEPRAZOLE SODIUM [Concomitant]
     Active Substance: OMEPRAZOLE SODIUM
     Indication: Product used for unknown indication
     Dates: start: 20220629
  21. OMEPRAZOLE SODIUM [Concomitant]
     Active Substance: OMEPRAZOLE SODIUM
     Dates: start: 20220622

REACTIONS (3)
  - Breakthrough COVID-19 [Unknown]
  - Febrile neutropenia [Recovered/Resolved]
  - Off label use [Unknown]

NARRATIVE: CASE EVENT DATE: 20221013
